FAERS Safety Report 7463943-0 (Version None)
Quarter: 2011Q2

REPORT INFORMATION
  Report Type: 
  Country: None (occurrence: None)
  Receive Date: 20110506
  Receipt Date: 20110421
  Transmission Date: 20111010
  Serious: Yes (Other)
  Sender: FDA-Public Use
  Company Number: US-GENZYME-THYM-1002444

PATIENT
  Age: 14 Year
  Sex: Female

DRUGS (1)
  1. THYMOGLOBULIN [Suspect]
     Indication: TYPE 1 DIABETES MELLITUS
     Dosage: UNK
     Route: 042

REACTIONS (4)
  - CYTOKINE RELEASE SYNDROME [None]
  - LYMPHOPENIA [None]
  - NEUTROPHIL COUNT INCREASED [None]
  - LIVER FUNCTION TEST ABNORMAL [None]
